FAERS Safety Report 16871495 (Version 1)
Quarter: 2019Q4

REPORT INFORMATION
  Report Type: Spontaneous
  Country: US (occurrence: US)
  Receive Date: 20191001
  Receipt Date: 20191001
  Transmission Date: 20200122
  Serious: No
  Sender: FDA-Public Use
  Company Number: US-SUN PHARMACEUTICAL INDUSTRIES LTD-2019R1-210815

PATIENT
  Sex: Female

DRUGS (2)
  1. LORATADINE. [Suspect]
     Active Substance: LORATADINE
     Indication: LACRIMATION INCREASED
     Dosage: UNK
     Route: 048
     Dates: start: 20190322
  2. LORATADINE. [Suspect]
     Active Substance: LORATADINE
     Indication: EYE PRURITUS

REACTIONS (2)
  - Drug ineffective [Unknown]
  - Wrong technique in product usage process [Unknown]
